FAERS Safety Report 7277355-6 (Version None)
Quarter: 2011Q1

REPORT INFORMATION
  Report Type: 
  Country: None (occurrence: None)
  Receive Date: 20110207
  Receipt Date: 20110127
  Transmission Date: 20110831
  Serious: Yes (Hospitalization)
  Sender: FDA-Public Use
  Company Number: FR-NOVOPROD-321818

PATIENT
  Age: 59 Year
  Sex: Female

DRUGS (10)
  1. DEPAKOTE [Suspect]
     Dosage: 1 TAB, QD
     Route: 048
     Dates: end: 20110112
  2. DOPAMINE [Concomitant]
  3. VECTARION [Concomitant]
  4. PARKINANE [Concomitant]
     Dosage: 2 TAB, QD
  5. VICTOZA [Suspect]
     Indication: TYPE 2 DIABETES MELLITUS
     Dosage: 0.6 MG, QD
     Route: 058
     Dates: start: 20100820, end: 20100101
  6. BIPRETERAX [Concomitant]
  7. MODITEN                            /00000602/ [Concomitant]
     Dosage: 2 TAB, QD
  8. ATARAX [Concomitant]
     Dosage: 1 TAB, QD
  9. VICTOZA [Suspect]
     Dosage: 1.2 MG, QD
     Route: 058
     Dates: start: 20100101, end: 20110111
  10. INSULINS AND ANALOGUES [Concomitant]

REACTIONS (3)
  - LIPASE INCREASED [None]
  - PANCREATITIS [None]
  - BLOOD AMYLASE INCREASED [None]
